FAERS Safety Report 6334313-3 (Version None)
Quarter: 2009Q3

REPORT INFORMATION
  Report Type: 
  Country: None (occurrence: None)
  Receive Date: 20090829
  Receipt Date: 20090807
  Transmission Date: 20100115
  Serious: No
  Sender: FDA-Public Use
  Company Number: US-ABBOTT-09P-163-0590099-00

PATIENT
  Sex: Female
  Weight: 95.34 kg

DRUGS (5)
  1. SIMCOR [Suspect]
     Indication: BLOOD CHOLESTEROL INCREASED
     Dosage: 500/20 MG
     Dates: start: 20090712
  2. PLAVIX [Suspect]
     Indication: CORONARY ARTERY OCCLUSION
     Dates: start: 20090201
  3. UNKNOWN BLOOD PRESSURE MEDICATION [Suspect]
     Indication: HYPERTENSION
     Dates: start: 20090301
  4. ASPIRIN [Concomitant]
     Indication: ADVERSE DRUG REACTION
  5. ASPIRIN [Concomitant]
     Indication: PROPHYLAXIS

REACTIONS (2)
  - ALOPECIA [None]
  - OEDEMA PERIPHERAL [None]
